FAERS Safety Report 8909009 (Version 1)
Quarter: 2012Q4

REPORT INFORMATION
  Report Type: 
  Country: US (occurrence: US)
  Receive Date: 20121113
  Receipt Date: 20121113
  Transmission Date: 20130627
  Serious: No
  Sender: FDA-Public Use
  Company Number: US-AMGEN-USASP2012011469

PATIENT
  Age: 45 Year
  Sex: Female
  Weight: 102 kg

DRUGS (19)
  1. ENBREL [Suspect]
     Indication: PRODUCT USED FOR UNKNOWN INDICATION
     Dosage: 50 mg, qwk
  2. PROTONIX [Concomitant]
     Dosage: 20 mg, UNK
  3. AMBIEN CR [Concomitant]
     Dosage: 12.5 mg, UNK
  4. TOPAMAX [Concomitant]
     Dosage: 25 mg, UNK
  5. EXCEDRIN MIGRAINE [Concomitant]
     Dosage: UNK
  6. BENADRYL                           /00000402/ [Concomitant]
     Dosage: 25 mg, UNK
  7. LISINOPRIL [Concomitant]
     Dosage: 5 mg, UNK
  8. VALTREX [Concomitant]
     Dosage: 1 g, UNK
  9. CYCLOBENZAPRINE [Concomitant]
     Dosage: 5 mg, UNK
  10. SKELAXIN                           /00611501/ [Concomitant]
     Dosage: 800 mg, UNK
  11. VITAMIN B-12 [Concomitant]
     Dosage: 1000 UNK, UNK
  12. CHROMIUM PICOLINATE [Concomitant]
     Dosage: 1667 mug, UNK
  13. IRON                               /00023503/ [Concomitant]
     Dosage: 18 mg, UNK
  14. FISH OIL [Concomitant]
     Dosage: UNK
  15. CALCIUM [Concomitant]
     Dosage: 500 mg, UNK
  16. VITAMIN C                          /00008001/ [Concomitant]
     Dosage: 500 mg, UNK
  17. COQ-10 [Concomitant]
     Dosage: 100 mg, UNK
  18. VITAMIN D3 [Concomitant]
     Dosage: UNK
  19. HYDROCODONE BITARTRATE AND ACETAMINOPHEN [Concomitant]
     Dosage: 7.5 mg, UNK

REACTIONS (1)
  - Injection site pain [Unknown]
